FAERS Safety Report 4280304-6 (Version None)
Quarter: 2004Q1

REPORT INFORMATION
  Report Type: 
  Country: None (occurrence: None)
  Receive Date: 20040126
  Receipt Date: 20040113
  Transmission Date: 20041129
  Serious: Yes (Death)
  Sender: FDA-Public Use
  Company Number: US051869

PATIENT
  Age: 68 Year
  Sex: Male

DRUGS (15)
  1. ENBREL [Suspect]
     Indication: RHEUMATOID ARTHRITIS
     Dosage: TWICE WEEKLY, SC
     Route: 058
     Dates: start: 20030521, end: 20030923
  2. METHOTREXATE [Suspect]
     Dates: end: 20030929
  3. METOLAZONE [Concomitant]
  4. FOLIC ACID [Concomitant]
  5. METFORMIN HCL [Concomitant]
  6. RAMIPRIL [Concomitant]
  7. PARAMOL-118 [Concomitant]
  8. SPIRONOLACTONE [Concomitant]
  9. DIGOXIN [Concomitant]
  10. GLICLAZIDE [Concomitant]
  11. FUROSEMIDE [Concomitant]
  12. BUDESONIDE [Concomitant]
  13. SALBUTAMOL [Concomitant]
  14. CLARITHROMYCIN [Concomitant]
  15. HYDROCORTISONE/POTASSIUM HUDROXYQUINOLIN SULFATE [Concomitant]

REACTIONS (6)
  - ADRENAL ADENOMA [None]
  - ARRHYTHMIA [None]
  - HEPATOMEGALY [None]
  - PLATELET COUNT DECREASED [None]
  - SPLENOMEGALY [None]
  - SUDDEN DEATH [None]
